FAERS Safety Report 4825278-1 (Version None)
Quarter: 2005Q4

REPORT INFORMATION
  Report Type: 
  Country: None (occurrence: None)
  Receive Date: 20051109
  Receipt Date: 20051027
  Transmission Date: 20060501
  Serious: Yes (Hospitalization)
  Sender: FDA-Public Use
  Company Number: 2005144078

PATIENT
  Age: 75 Year
  Sex: Male

DRUGS (7)
  1. CLINDAMYCIN HCL [Suspect]
     Indication: OSTEOMYELITIS
     Dosage: (300 MG) , ORAL
     Route: 048
     Dates: start: 20050929
  2. ZESTRIL [Concomitant]
  3. ZOCOR [Concomitant]
  4. IMOVANE (ZOPICLONE) [Concomitant]
  5. DIURAL (FUROSEMIDE [Concomitant]
  6. CENTYL (BENDROFLUMETHIAZIDE) [Concomitant]
  7. ALBYL-E (ACETYLSALICYLIC ACID, MAGNESIUM OXIDE) [Concomitant]

REACTIONS (8)
  - APHAGIA [None]
  - ASPIRATION [None]
  - FOREIGN BODY TRAUMA [None]
  - PHARYNGEAL ERYTHEMA [None]
  - PHARYNGEAL OEDEMA [None]
  - PHARYNGEAL ULCERATION [None]
  - PHARYNGOLARYNGEAL PAIN [None]
  - VIRAL INFECTION [None]
